FAERS Safety Report 7820845-5 (Version None)
Quarter: 2011Q4

REPORT INFORMATION
  Report Type: 
  Country: None (occurrence: None)
  Receive Date: 20111018
  Receipt Date: 20101214
  Transmission Date: 20120403
  Serious: No
  Sender: FDA-Public Use
  Company Number: US-ASTRAZENECA-2010SE59369

PATIENT

DRUGS (2)
  1. SYMBICORT [Suspect]
     Indication: BRONCHITIS CHRONIC
     Route: 055
  2. SYMBICORT [Suspect]
     Indication: ASTHMA
     Route: 055

REACTIONS (5)
  - CHRONIC OBSTRUCTIVE PULMONARY DISEASE [None]
  - FEAR [None]
  - DRUG DOSE OMISSION [None]
  - RESPIRATORY DISTRESS [None]
  - ANXIETY [None]
